FAERS Safety Report 10076971 (Version 1)
Quarter: 2014Q2

REPORT INFORMATION
  Report Type: Spontaneous
  Country: US (occurrence: US)
  Receive Date: 20140414
  Receipt Date: 20140414
  Transmission Date: 20141212
  Serious: Yes (Hospitalization, Other)
  Sender: FDA-Public Use
  Company Number: US-ELI_LILLY_AND_COMPANY-US201404001352

PATIENT
  Age: 45 Year
  Sex: Female

DRUGS (3)
  1. CYMBALTA [Suspect]
     Indication: DEPRESSION
     Dosage: 60 MG, QD
     Route: 065
     Dates: start: 2008
  2. CYMBALTA [Suspect]
     Indication: ANXIETY
     Dosage: 30 MG, QD
     Route: 065
  3. CYMBALTA [Suspect]
     Indication: FIBROMYALGIA
     Dosage: 60 MG, QD
     Route: 065
     Dates: start: 2011

REACTIONS (10)
  - Glucose tolerance impaired [Unknown]
  - Wrong technique in drug usage process [Unknown]
  - Depression [Recovered/Resolved]
  - Hypertension [Unknown]
  - Anxiety [Recovered/Resolved]
  - Paraesthesia [Recovered/Resolved]
  - Nausea [Unknown]
  - Drug withdrawal syndrome [Recovered/Resolved]
  - Autoimmune thyroiditis [Unknown]
  - Weight increased [Unknown]
